FAERS Safety Report 15657581 (Version 1)
Quarter: 2018Q4

REPORT INFORMATION
  Report Type: Spontaneous
  Country: US (occurrence: US)
  Receive Date: 20181126
  Receipt Date: 20181126
  Transmission Date: 20190205
  Serious: Yes (Other)
  Sender: FDA-Public Use
  Company Number: US-SHIRE-US201844944

PATIENT
  Sex: Female
  Weight: 68.27 kg

DRUGS (1)
  1. XIIDRA [Suspect]
     Active Substance: LIFITEGRAST
     Indication: DRY EYE
     Dosage: UNK
     Route: 047
     Dates: start: 201806

REACTIONS (5)
  - Eye injury [Recovered/Resolved]
  - Instillation site reaction [Recovered/Resolved]
  - Herpes ophthalmic [Recovered/Resolved]
  - Vision blurred [Recovered/Resolved]
  - Eye disorder [Recovered/Resolved]

NARRATIVE: CASE EVENT DATE: 2018
